FAERS Safety Report 8307806-7 (Version None)
Quarter: 2012Q2

REPORT INFORMATION
  Report Type: 
  Country: None (occurrence: None)
  Receive Date: 20120424
  Receipt Date: 20120418
  Transmission Date: 20120825
  Serious: Yes (Other)
  Sender: FDA-Public Use
  Company Number: BR-AMGEN-BRACT2012024395

PATIENT
  Age: 59 Year
  Sex: Male

DRUGS (2)
  1. DOCETAXEL [Concomitant]
     Dosage: 75 MG/M2, UNK
     Dates: start: 20100913, end: 20110202
  2. DENOSUMAB [Suspect]
     Indication: PROSTATE CANCER

REACTIONS (1)
  - EXPOSED BONE IN JAW [None]
